FAERS Safety Report 6289945-8 (Version None)
Quarter: 2009Q3

REPORT INFORMATION
  Report Type: 
  Country: None (occurrence: None)
  Receive Date: 20090730
  Receipt Date: 20080925
  Transmission Date: 20100115
  Serious: No
  Sender: FDA-Public Use
  Company Number: US-BRISTOL-MYERS SQUIBB COMPANY-14348171

PATIENT
  Age: 72 Year
  Sex: Male

DRUGS (2)
  1. COUMADIN [Suspect]
     Indication: ATRIAL FIBRILLATION
     Dosage: STOPPED ON 18FEB08 AND AGAIN RESTARTED
     Dates: start: 20080104
  2. WARFARIN SODIUM [Suspect]
     Dates: start: 20080218, end: 20080101

REACTIONS (1)
  - RASH [None]
